FAERS Safety Report 4275202-8 (Version None)
Quarter: 2004Q1

REPORT INFORMATION
  Report Type: 
  Country: None (occurrence: None)
  Receive Date: 20040116
  Receipt Date: 20040107
  Transmission Date: 20041129
  Serious: Yes (Life-Threatening)
  Sender: FDA-Public Use
  Company Number: DSA_70169_2003

PATIENT
  Age: 54 Year
  Sex: Female

DRUGS (2)
  1. AZASAN [Suspect]
     Dosage: 50 MG BID PO
     Route: 048
     Dates: start: 20031030, end: 20031203
  2. AZASAN [Suspect]
     Dosage: 50 MG QDAY PO
     Route: 048
     Dates: start: 20030801, end: 20031030

REACTIONS (2)
  - ABDOMINAL PAIN UPPER [None]
  - GASTROINTESTINAL HAEMORRHAGE [None]
